FAERS Safety Report 6554045-6 (Version None)
Quarter: 2010Q1

REPORT INFORMATION
  Report Type: 
  Country: None (occurrence: None)
  Receive Date: 20100122
  Receipt Date: 20090110
  Transmission Date: 20100710
  Serious: Yes (Death)
  Sender: FDA-Public Use
  Company Number: 2010000219

PATIENT
  Age: 46 Year
  Sex: Male

DRUGS (6)
  1. ACTIQ [Suspect]
     Dosage: (400 MCG),BU
     Route: 002
  2. LORTAB [Suspect]
  3. PERCOCET [Suspect]
  4. METHADOSE [Suspect]
  5. SOMA [Suspect]
  6. VALIUM [Suspect]

REACTIONS (4)
  - DEPENDENCE [None]
  - DRUG ABUSE [None]
  - MULTIPLE DRUG OVERDOSE ACCIDENTAL [None]
  - NO THERAPEUTIC RESPONSE [None]
